FAERS Safety Report 9320811 (Version 1)
Quarter: 2013Q2

REPORT INFORMATION
  Report Type: Spontaneous
  Country: US (occurrence: None)
  Receive Date: 20130529
  Receipt Date: 20130529
  Transmission Date: 20140414
  Serious: Yes (Hospitalization)
  Sender: FDA-Public Use
  Company Number: None

PATIENT
  Age: 78 Year
  Sex: Male

DRUGS (2)
  1. SUTENT [Suspect]
     Indication: GASTROINTESTINAL CARCINOMA
     Route: 048
     Dates: start: 20130301
  2. SUTENT [Suspect]
     Indication: METASTASES TO THE RESPIRATORY SYSTEM
     Route: 048
     Dates: start: 20130301

REACTIONS (2)
  - Chest pain [None]
  - Blood count abnormal [None]
